FAERS Safety Report 5388046-0 (Version None)
Quarter: 2007Q3

REPORT INFORMATION
  Report Type: 
  Country: None (occurrence: None)
  Receive Date: 20070712
  Receipt Date: 20070704
  Transmission Date: 20080115
  Serious: Yes (Other)
  Sender: FDA-Public Use
  Company Number: OSCN-PR-0707S-0280

PATIENT
  Age: 63 Year
  Sex: Male

DRUGS (1)
  1. OMNISCAN [Suspect]
     Indication: DRUG USE FOR UNKNOWN INDICATION
     Dosage: 43 ML, SINGLE DOSE, I.V.
     Route: 042
     Dates: start: 20040101, end: 20040101

REACTIONS (1)
  - NEPHROGENIC SYSTEMIC FIBROSIS [None]
